FAERS Safety Report 13397387 (Version 1)
Quarter: 2017Q2

REPORT INFORMATION
  Report Type: Spontaneous
  Country: US (occurrence: US)
  Receive Date: 20170403
  Receipt Date: 20170403
  Transmission Date: 20170830
  Serious: Yes (Other)
  Sender: FDA-Public Use
  Company Number: US-SA-2017SA011650

PATIENT
  Age: 45 Year
  Sex: Female

DRUGS (2)
  1. ESTRADIOL. [Concomitant]
     Active Substance: ESTRADIOL
     Indication: HORMONE REPLACEMENT THERAPY
  2. ASPERCREME MAX NO MESS ROLL ON [Suspect]
     Active Substance: MENTHOL
     Indication: NECK PAIN
     Route: 065
     Dates: start: 20170118, end: 20170118

REACTIONS (9)
  - Application site vesicles [None]
  - Application site erythema [None]
  - Application site pain [None]
  - No reaction on previous exposure to drug [None]
  - Blister [Recovered/Resolved]
  - Pain of skin [Recovered/Resolved]
  - Application site burn [None]
  - Erythema [Recovered/Resolved]
  - Burns second degree [Recovered/Resolved]

NARRATIVE: CASE EVENT DATE: 20170118
